FAERS Safety Report 7331709-8 (Version None)
Quarter: 2011Q1

REPORT INFORMATION
  Report Type: 
  Country: None (occurrence: None)
  Receive Date: 20110304
  Receipt Date: 20110221
  Transmission Date: 20110831
  Serious: Yes (Other)
  Sender: FDA-Public Use
  Company Number: PHHY2010FR74999

PATIENT
  Sex: Female
  Weight: 63 kg

DRUGS (1)
  1. GLEEVEC [Suspect]
     Indication: CHRONIC MYELOID LEUKAEMIA
     Dosage: 400 MG, DAILY
     Route: 048
     Dates: start: 20050119

REACTIONS (4)
  - CHEST PAIN [None]
  - PALPITATIONS [None]
  - AORTIC VALVE INCOMPETENCE [None]
  - OEDEMA [None]
